FAERS Safety Report 8252964-6 (Version None)
Quarter: 2012Q2

REPORT INFORMATION
  Report Type: 
  Country: None (occurrence: None)
  Receive Date: 20120402
  Receipt Date: 20120326
  Transmission Date: 20120825
  Serious: Yes (Other)
  Sender: FDA-Public Use
  Company Number: CN-ABBOTT-12P-035-0918810-00

PATIENT
  Age: 28 Year
  Sex: Male

DRUGS (2)
  1. DEPAKENE [Suspect]
     Dosage: TWICE A DAY, EVENING DOSE 1.5 TABLETS
     Route: 048
     Dates: start: 20120310
  2. DEPAKENE [Suspect]
     Indication: EPILEPSY
     Route: 048
     Dates: start: 20090901, end: 20120310

REACTIONS (3)
  - EPILEPSY [None]
  - MUSCULAR WEAKNESS [None]
  - TONGUE BITING [None]
